FAERS Safety Report 7618765-4 (Version None)
Quarter: 2011Q3

REPORT INFORMATION
  Report Type: 
  Country: None (occurrence: None)
  Receive Date: 20110718
  Receipt Date: 20110704
  Transmission Date: 20111222
  Serious: Yes (Hospitalization)
  Sender: FDA-Public Use
  Company Number: PHHO2011KR07603

PATIENT
  Sex: Male
  Weight: 68 kg

DRUGS (2)
  1. AFINITOR [Suspect]
     Dosage: CODE NOT BROKEN
     Route: 048
     Dates: start: 20110503, end: 20110514
  2. AFINITOR [Suspect]
     Indication: METASTATIC RENAL CELL CARCINOMA
     Dosage: CODE NOT BROKEN
     Route: 048
     Dates: start: 20110404, end: 20110427

REACTIONS (4)
  - RENAL FAILURE ACUTE [None]
  - NEOPLASM PROGRESSION [None]
  - CYSTITIS HAEMORRHAGIC [None]
  - NEOPLASM MALIGNANT [None]
